FAERS Safety Report 7452162-X (Version None)
Quarter: 2011Q2

REPORT INFORMATION
  Report Type: 
  Country: None (occurrence: None)
  Receive Date: 20110502
  Receipt Date: 20110427
  Transmission Date: 20111010
  Serious: Yes (Disabling, Other)
  Sender: FDA-Public Use
  Company Number: US-PFIZER INC-2011091331

PATIENT
  Sex: Male
  Weight: 76.19 kg

DRUGS (6)
  1. ZOLOFT [Suspect]
     Indication: ATTENTION DEFICIT/HYPERACTIVITY DISORDER
     Dosage: UNK
     Route: 048
  2. ZOLOFT [Suspect]
     Indication: DEPRESSION
  3. WELLBUTRIN [Concomitant]
  4. PROZAC [Concomitant]
  5. EFFEXOR [Concomitant]
  6. KLONOPIN [Suspect]
     Dosage: UNK

REACTIONS (16)
  - LOSS OF CONSCIOUSNESS [None]
  - APPARENT DEATH [None]
  - INJURY [None]
  - OVERDOSE [None]
  - HYPOXIA [None]
  - EPILEPSY [None]
  - PARAESTHESIA [None]
  - DRUG DEPENDENCE [None]
  - FATIGUE [None]
  - PERSONALITY CHANGE DUE TO A GENERAL MEDICAL CONDITION [None]
  - DRUG HYPERSENSITIVITY [None]
  - MEMORY IMPAIRMENT [None]
  - ROAD TRAFFIC ACCIDENT [None]
  - SPEECH DISORDER [None]
  - DISABILITY [None]
  - BLOOD TEST ABNORMAL [None]
